FAERS Safety Report 4457734-2 (Version None)
Quarter: 2004Q3

REPORT INFORMATION
  Report Type: 
  Country: None (occurrence: None)
  Receive Date: 20040831
  Receipt Date: 20040729
  Transmission Date: 20050211
  Serious: No
  Sender: FDA-Public Use
  Company Number: FABR-10709

PATIENT
  Age: 55 Year
  Sex: Male
  Weight: 70 kg

DRUGS (3)
  1. FABRAZYME [Suspect]
     Indication: FABRY'S DISEASE
     Dosage: 70 MG Q2WKS IV
     Route: 042
     Dates: start: 20040428
  2. TYLENOL [Concomitant]
  3. BENADRYL [Concomitant]

REACTIONS (4)
  - BACK PAIN [None]
  - CHILLS [None]
  - DYSPNOEA [None]
  - PERIPHERAL COLDNESS [None]
